FAERS Safety Report 6817084-3 (Version None)
Quarter: 2010Q3

REPORT INFORMATION
  Report Type: 
  Country: None (occurrence: None)
  Receive Date: 20100706
  Receipt Date: 20100628
  Transmission Date: 20110219
  Serious: Yes (Other)
  Sender: FDA-Public Use
  Company Number: FR-ASTRAZENECA-2010SE30467

PATIENT
  Age: 30509 Day
  Sex: Male

DRUGS (7)
  1. ATACAND [Suspect]
     Route: 048
     Dates: start: 20090219
  2. OFLOCET [Suspect]
     Indication: ESCHERICHIA INFECTION
     Route: 042
     Dates: start: 20090218, end: 20090219
  3. OFLOCET [Suspect]
     Route: 048
     Dates: start: 20090220, end: 20090303
  4. NEBILOX [Suspect]
     Route: 048
     Dates: start: 20090219
  5. EZETROL [Suspect]
     Route: 048
     Dates: start: 20090218
  6. KARDEGIC [Concomitant]
  7. DAFALGAN [Concomitant]

REACTIONS (1)
  - MUSCLE RUPTURE [None]
